FAERS Safety Report 13618611 (Version 1)
Quarter: 2017Q2

REPORT INFORMATION
  Report Type: Spontaneous
  Country: US (occurrence: US)
  Receive Date: 20170606
  Receipt Date: 20170606
  Transmission Date: 20170830
  Serious: No
  Sender: FDA-Public Use
  Company Number: US-SHIRE-US201711486

PATIENT
  Age: 62 Year
  Sex: Female
  Weight: 54.42 kg

DRUGS (7)
  1. ADVIL (MEFENAMIC ACID) [Concomitant]
     Active Substance: MEFENAMIC ACID
     Indication: FIBROMYALGIA
  2. PREDNISONE. [Concomitant]
     Active Substance: PREDNISONE
     Indication: FIBROMYALGIA
     Dosage: 4 MG (IN AM), 1X/DAY:QD
     Route: 048
  3. FISH OIL [Concomitant]
     Active Substance: FISH OIL
     Indication: SUPPLEMENTATION THERAPY
     Dosage: 1290 MG (AT BEDTIME), 1X/DAY:QD
     Route: 048
  4. LEVOXYL [Concomitant]
     Active Substance: LEVOTHYROXINE SODIUM
     Indication: THYROID DISORDER
     Dosage: 112 MG (IN AM), 1X/DAY:QD
     Route: 048
  5. ZYRTEC                             /00884302/ [Concomitant]
     Indication: SEASONAL ALLERGY
     Dosage: 10 MG (IN AM), 1X/DAY:QD
     Route: 048
  6. XIIDRA [Suspect]
     Active Substance: LIFITEGRAST
     Indication: DRY EYE
     Dosage: 1 GTT (IN EACH EYE), 2X/DAY:BID
     Route: 047
     Dates: start: 201704, end: 201704
  7. ADVIL (MEFENAMIC ACID) [Concomitant]
     Active Substance: MEFENAMIC ACID
     Indication: PAIN
     Dosage: 200 MG, AS REQ^D
     Route: 048

REACTIONS (8)
  - Instillation site pain [Recovered/Resolved]
  - Neck pain [Recovering/Resolving]
  - Tracheitis [Recovering/Resolving]
  - Incorrect dosage administered [Recovered/Resolved]
  - Dysphonia [Not Recovered/Not Resolved]
  - Neck mass [Recovering/Resolving]
  - Blister [Recovered/Resolved]
  - Temperature intolerance [Recovering/Resolving]

NARRATIVE: CASE EVENT DATE: 201704
